FAERS Safety Report 8010254-0 (Version None)
Quarter: 2011Q4

REPORT INFORMATION
  Report Type: 
  Country: None (occurrence: None)
  Receive Date: 20111228
  Receipt Date: 20111219
  Transmission Date: 20120403
  Serious: Yes (Other)
  Sender: FDA-Public Use
  Company Number: CA-JNJFOC-20111210254

PATIENT
  Sex: Female

DRUGS (2)
  1. SIMPONI [Suspect]
     Indication: PSORIATIC ARTHROPATHY
     Route: 058
     Dates: start: 20091001, end: 20110701
  2. METHOTREXATE [Concomitant]
     Indication: ARTHRITIS

REACTIONS (6)
  - PSORIATIC ARTHROPATHY [None]
  - ALOPECIA [None]
  - NAIL DISORDER [None]
  - ASTHMA [None]
  - DRUG INEFFECTIVE [None]
  - SCLERAL DISCOLOURATION [None]
